FAERS Safety Report 13859327 (Version 1)
Quarter: 2017Q3

REPORT INFORMATION
  Report Type: Spontaneous
  Country: US (occurrence: US)
  Receive Date: 20170811
  Receipt Date: 20170811
  Transmission Date: 20171127
  Serious: No
  Sender: FDA-Public Use
  Company Number: US-PERRIGO-17US003638

PATIENT
  Sex: Female

DRUGS (1)
  1. LORATADINE. [Suspect]
     Active Substance: LORATADINE
     Indication: PRODUCT USED FOR UNKNOWN INDICATION
     Dosage: 10 MG, SINGLE
     Route: 048
     Dates: start: 20170426, end: 20170426

REACTIONS (5)
  - Hypersensitivity [Unknown]
  - Pain [Unknown]
  - Tremor [Unknown]
  - Feeling cold [Unknown]
  - Pyrexia [Unknown]

NARRATIVE: CASE EVENT DATE: 20170426
